FAERS Safety Report 8265512-1 (Version None)
Quarter: 2012Q2

REPORT INFORMATION
  Report Type: 
  Country: None (occurrence: None)
  Receive Date: 20120406
  Receipt Date: 20120403
  Transmission Date: 20120825
  Serious: Yes (Other)
  Sender: FDA-Public Use
  Company Number: ES-PFIZER INC-2012084539

PATIENT
  Age: 48 Year
  Sex: Male
  Weight: 90 kg

DRUGS (20)
  1. LEVOFLOXACIN [Interacting]
     Dosage: 500 MG, 1X/DAY
     Route: 048
     Dates: start: 20110918, end: 20110928
  2. ENOXAPARIN SODIUM [Interacting]
     Dosage: 20 MG, 1X/DAY
     Route: 058
     Dates: start: 20110825, end: 20110826
  3. CUBICIN [Interacting]
     Dosage: 350 MG, 1X/DAY
     Route: 042
     Dates: start: 20110910, end: 20110914
  4. OMEPRAZOLE [Interacting]
     Dosage: 20 MG, 1X/DAY
     Route: 048
     Dates: start: 20110825, end: 20111007
  5. MEROPENEM [Interacting]
     Dosage: 1 G, 1X/DAY
     Route: 042
     Dates: start: 20110905, end: 20110914
  6. PIPERACILLIN AND TAZOBACTAM [Suspect]
     Dosage: 1 G, 4X/DAY
     Route: 042
     Dates: start: 20110914, end: 20110919
  7. ALLOPURINOL [Interacting]
     Dosage: 300 MG, 1X/DAY
     Route: 048
     Dates: start: 20110825, end: 20110908
  8. ACETAMINOPHEN [Interacting]
     Dosage: 1 G, 3X/DAY
     Route: 042
     Dates: start: 20110825, end: 20110908
  9. ORBENIN CAP [Interacting]
     Dosage: 1000 MG, 4X/DAY
     Route: 048
     Dates: start: 20110831, end: 20110916
  10. MAXIPIME [Interacting]
     Dosage: 1 G, 1X/DAY
     Route: 042
     Dates: start: 20110825, end: 20110903
  11. FUROSEMIDE [Interacting]
     Dosage: 20 MG, 1X/DAY
     Route: 042
     Dates: start: 20110908, end: 20110926
  12. TARGOCID [Interacting]
     Dosage: 400 MG, 1X/DAY
     Route: 042
     Dates: start: 20110906, end: 20110919
  13. ACYCLOVIR [Interacting]
     Dosage: 500 MG, 3X/DAY
     Route: 042
     Dates: start: 20110911, end: 20110913
  14. DUPHALAC [Interacting]
     Dosage: 10 G, 1X/DAY
     Route: 048
     Dates: start: 20110831, end: 20110914
  15. POLARAMINE [Interacting]
     Dosage: 12 MG, AS NEEDED
     Route: 048
     Dates: start: 20110916, end: 20110922
  16. UROKINASE ^VEDIM^ [Interacting]
     Dosage: 100000 IU, SINGLE
     Route: 065
     Dates: start: 20110915, end: 20110915
  17. VESANOID [Interacting]
     Indication: ACUTE PROMYELOCYTIC LEUKAEMIA
     Dosage: 50 MG, 2X/DAY
     Route: 048
     Dates: start: 20110826, end: 20111007
  18. AMBISOME [Interacting]
     Dosage: 250 MG, 1X/DAY
     Route: 042
     Dates: start: 20110916, end: 20110926
  19. HEPARIN SODIUM [Interacting]
     Dosage: 2500 IU, 1X/DAY
     Route: 058
     Dates: start: 20110907, end: 20110930
  20. POSACONAZOLE [Interacting]
     Dosage: 40 MG/ML, UNK
     Route: 048
     Dates: start: 20110902, end: 20110917

REACTIONS (2)
  - DRUG INTERACTION [None]
  - MYOSITIS [None]
